FAERS Safety Report 13075994 (Version 1)
Quarter: 2016Q4

REPORT INFORMATION
  Report Type: Report from Study
  Country: AU (occurrence: AU)
  Receive Date: 20161230
  Receipt Date: 20161230
  Transmission Date: 20170207
  Serious: Yes (Hospitalization, Other)
  Sender: FDA-Public Use
  Company Number: AU-REGENERON PHARMACEUTICALS, INC.-2016-25675

PATIENT

DRUGS (1)
  1. EYLEA [Suspect]
     Active Substance: AFLIBERCEPT
     Indication: NEOVASCULAR AGE-RELATED MACULAR DEGENERATION
     Dosage: 2 MG, EVERY 10-12 WEEKS (NOT REQUIRED FOR 4 MONTHS)
     Route: 031
     Dates: start: 201506

REACTIONS (5)
  - Eye infection viral [Recovering/Resolving]
  - Drug hypersensitivity [Recovered/Resolved]
  - Cataract operation [Unknown]
  - Oral herpes [Recovering/Resolving]
  - Back disorder [Not Recovered/Not Resolved]

NARRATIVE: CASE EVENT DATE: 20160718
